FAERS Safety Report 9279519 (Version 1)
Quarter: 2013Q2

REPORT INFORMATION
  Report Type: Spontaneous
  Country: US (occurrence: US)
  Receive Date: 20130509
  Receipt Date: 20130509
  Transmission Date: 20140414
  Serious: No
  Sender: FDA-Public Use
  Company Number: US-B.I. PHARMACEUTICALS,INC./RIDGEFIELD-2013-BI-12616BP

PATIENT
  Sex: Female
  Weight: 79 kg

DRUGS (16)
  1. SPIRIVA [Suspect]
     Indication: EMPHYSEMA
     Dosage: 18 MCG
     Route: 055
     Dates: start: 2008
  2. ATORVASTATIN [Concomitant]
     Indication: BLOOD CHOLESTEROL INCREASED
     Dosage: 40 MG
     Route: 048
  3. SENNA [Concomitant]
     Indication: CONSTIPATION
     Route: 048
  4. HYDROCHLOROTHIAZIDE [Concomitant]
     Indication: HYPERTENSION
     Dosage: 25 MG
     Route: 048
  5. DIAZEPAM [Concomitant]
     Indication: RESTLESS LEGS SYNDROME
     Dosage: 5 MG
     Route: 048
  6. WARFARIN [Concomitant]
     Indication: ANTICOAGULANT THERAPY
     Dosage: 3.5 MG
     Route: 048
  7. WARFARIN [Concomitant]
     Dosage: 3 MG
     Route: 048
  8. LEXAPRO [Concomitant]
     Indication: DEPRESSION
     Dosage: 20 MG
     Route: 048
  9. ISOSORBIDE MN ER [Concomitant]
     Indication: HYPERTENSION
     Dosage: 60 MG
     Route: 048
  10. OMEPRAZOLE [Concomitant]
     Indication: GASTROOESOPHAGEAL REFLUX DISEASE
     Dosage: 60 MG
     Route: 048
  11. OMEPRAZOLE [Concomitant]
     Indication: BARRETT^S OESOPHAGUS
  12. ASPIRIN [Concomitant]
     Indication: ANTICOAGULANT THERAPY
     Dosage: 81 MG
     Route: 048
  13. METOPROLOL SUCCINATE [Concomitant]
     Indication: HYPERTENSION
     Dosage: 100 MG
     Route: 048
  14. ACCUPRIL [Concomitant]
     Indication: HYPERTENSION
     Dosage: 40 MG
     Route: 048
  15. MULTIVITAMIN WITH IRON [Concomitant]
     Route: 048
  16. HYDROCODONE [Concomitant]
     Indication: ARTHRITIS
     Dosage: STRENGTH: 7.5/500MG
     Route: 048

REACTIONS (1)
  - Dyspnoea [Not Recovered/Not Resolved]
